FAERS Safety Report 4974440-6 (Version None)
Quarter: 2006Q2

REPORT INFORMATION
  Report Type: 
  Country: None (occurrence: None)
  Receive Date: 20060417
  Receipt Date: 20050301
  Transmission Date: 20061013
  Serious: Yes (Hospitalization, Other)
  Sender: FDA-Public Use
  Company Number: DE-BRISTOL-MYERS SQUIBB COMPANY-13329321

PATIENT
  Sex: Female

DRUGS (6)
  1. VIDEX [Suspect]
     Indication: HIV INFECTION
     Dates: start: 20010401
  2. LAMIVUDINE [Suspect]
     Indication: HIV INFECTION
     Dosage: TAKING IRREGULAR DUE TO EMESIS
     Dates: start: 20010401
  3. NEVIRAPINE [Suspect]
     Indication: HIV INFECTION
     Dates: start: 20010401
  4. ABACAVIR [Suspect]
     Indication: HIV INFECTION
     Dosage: TAKING IRREGULAR DUE TO EMESIS
     Dates: start: 20020101
  5. ZIDOVUDINE [Suspect]
     Indication: HIV INFECTION
     Dosage: TAKING IRREGULAR DUE TO EMESIS
     Dates: start: 20020101
  6. CITALOPRAM [Concomitant]
     Indication: DEPRESSION
     Dates: start: 20030701

REACTIONS (6)
  - ABDOMINAL PAIN LOWER [None]
  - ABORTION INDUCED [None]
  - BREAST PAIN [None]
  - HERPES SIMPLEX [None]
  - PREGNANCY [None]
  - VULVAL DISORDER [None]
